FAERS Safety Report 4801817-1 (Version None)
Quarter: 2005Q4

REPORT INFORMATION
  Report Type: 
  Country: None (occurrence: None)
  Receive Date: 20051011
  Receipt Date: 20050926
  Transmission Date: 20060501
  Serious: Yes (Other)
  Sender: FDA-Public Use
  Company Number: 142607USA

PATIENT
  Age: 21 Year
  Sex: Female
  Weight: 53.978 kg

DRUGS (1)
  1. MEDROXYPROGESTERONE [Suspect]
     Dates: start: 20050617

REACTIONS (3)
  - ABORTION SPONTANEOUS [None]
  - DRUG EXPOSURE DURING PREGNANCY [None]
  - PREGNANCY WITH INJECTABLE CONTRACEPTIVE [None]
